FAERS Safety Report 14527251 (Version 1)
Quarter: 2018Q1

REPORT INFORMATION
  Report Type: Spontaneous
  Country: DK (occurrence: DK)
  Receive Date: 20180213
  Receipt Date: 20180213
  Transmission Date: 20180509
  Serious: Yes (Life-Threatening)
  Sender: FDA-Public Use
  Company Number: DK-FRESENIUS KABI-FK201801788

PATIENT
  Age: 58 Year
  Sex: Male

DRUGS (1)
  1. SUMATRIPTAN (MANUFACTURER UNKNOWN) (SUMATRIPTAN SUCCINATE) (SUMATRIPTAN SUCCINATE) [Suspect]
     Active Substance: SUMATRIPTAN
     Indication: PRODUCT USED FOR UNKNOWN INDICATION
     Route: 065

REACTIONS (1)
  - Torsade de pointes [Unknown]
